FAERS Safety Report 21685061 (Version 1)
Quarter: 2022Q4

REPORT INFORMATION
  Report Type: Spontaneous
  Country: GB (occurrence: GB)
  Receive Date: 20221206
  Receipt Date: 20221206
  Transmission Date: 20230113
  Serious: Yes (Other)
  Sender: FDA-Public Use
  Company Number: GB-TEVA-2022-GB-2833096

PATIENT
  Age: 40 Year
  Sex: Male

DRUGS (5)
  1. LEUCOVORIN [Suspect]
     Active Substance: LEUCOVORIN
     Indication: Hereditary non-polyposis colorectal cancer syndrome
     Dosage: 50% DOSE REDUCTION FROM CYCLE 2
     Route: 065
  2. FLUOROURACIL [Suspect]
     Active Substance: FLUOROURACIL
     Indication: Hereditary non-polyposis colorectal cancer syndrome
     Dosage: 50% DOSE REDUCTION FROM CYCLE 2
     Route: 042
  3. OXALIPLATIN [Suspect]
     Active Substance: OXALIPLATIN
     Indication: Hereditary non-polyposis colorectal cancer syndrome
     Dosage: 50% DOSE REDUCTION FROM CYCLE 2
     Route: 065
  4. NIVOLUMAB [Suspect]
     Active Substance: NIVOLUMAB
     Indication: Hereditary non-polyposis colorectal cancer syndrome
     Dosage: CYCLICAL
     Route: 065
  5. MITOMYCIN C [Concomitant]
     Active Substance: MITOMYCIN
     Indication: Colorectal cancer
     Route: 065

REACTIONS (3)
  - Treatment failure [Unknown]
  - Diarrhoea [Unknown]
  - Fatigue [Unknown]
